FAERS Safety Report 26158004 (Version 1)
Quarter: 2025Q4

REPORT INFORMATION
  Report Type: Spontaneous
  Country: US (occurrence: US)
  Receive Date: 20251215
  Receipt Date: 20251215
  Transmission Date: 20260118
  Serious: Yes (Life-Threatening)
  Sender: MYLAN
  Company Number: US-MYLANLABS-2025M1105269

PATIENT
  Age: 24 Year
  Sex: Female

DRUGS (8)
  1. DEXAMETHASONE [Suspect]
     Active Substance: DEXAMETHASONE
     Indication: Juvenile idiopathic arthritis
     Dosage: 2 DOSAGE FORM (TWO TABLES FOR THE LAST ONE YEAR)
  2. DEXAMETHASONE [Suspect]
     Active Substance: DEXAMETHASONE
     Dosage: 2 DOSAGE FORM (TWO TABLES FOR THE LAST ONE YEAR)
     Route: 065
  3. DEXAMETHASONE [Suspect]
     Active Substance: DEXAMETHASONE
     Dosage: 2 DOSAGE FORM (TWO TABLES FOR THE LAST ONE YEAR)
     Route: 065
  4. DEXAMETHASONE [Suspect]
     Active Substance: DEXAMETHASONE
     Dosage: 2 DOSAGE FORM (TWO TABLES FOR THE LAST ONE YEAR)
  5. DICLOFENAC [Suspect]
     Active Substance: DICLOFENAC
     Indication: Juvenile idiopathic arthritis
     Dosage: 2 DOSAGE FORM (TWO TABLES FOR THE LAST ONE YEAR)
  6. DICLOFENAC [Suspect]
     Active Substance: DICLOFENAC
     Dosage: 2 DOSAGE FORM (TWO TABLES FOR THE LAST ONE YEAR)
     Route: 065
  7. DICLOFENAC [Suspect]
     Active Substance: DICLOFENAC
     Dosage: 2 DOSAGE FORM (TWO TABLES FOR THE LAST ONE YEAR)
     Route: 065
  8. DICLOFENAC [Suspect]
     Active Substance: DICLOFENAC
     Dosage: 2 DOSAGE FORM (TWO TABLES FOR THE LAST ONE YEAR)

REACTIONS (2)
  - Hypothalamic pituitary adrenal axis suppression [Unknown]
  - Product formulation issue [Unknown]
